FAERS Safety Report 17015746 (Version 1)
Quarter: 2019Q4

REPORT INFORMATION
  Report Type: Spontaneous
  Country: US (occurrence: US)
  Receive Date: 20191003
  Receipt Date: 20191003
  Transmission Date: 20200122
  Serious: No
  Sender: FDA-Public Use
  Company Number: None

PATIENT
  Age: 43 Year
  Sex: Female

DRUGS (1)
  1. VOTRIENT [Suspect]
     Active Substance: PAZOPANIB HYDROCHLORIDE
     Route: 048
     Dates: start: 201906

REACTIONS (6)
  - Headache [None]
  - Metastases to adrenals [None]
  - Memory impairment [None]
  - Pain in extremity [None]
  - Disturbance in attention [None]
  - Cancer pain [None]

NARRATIVE: CASE EVENT DATE: 20191002
